FAERS Safety Report 4999203-7 (Version None)
Quarter: 2006Q2

REPORT INFORMATION
  Report Type: 
  Country: None (occurrence: None)
  Receive Date: 20060511
  Receipt Date: 20060504
  Transmission Date: 20061013
  Serious: Yes (Other)
  Sender: FDA-Public Use
  Company Number: PHBS2006BR06798

PATIENT
  Age: 33 Year
  Sex: Female
  Weight: 61 kg

DRUGS (3)
  1. HIDANTAL [Concomitant]
     Indication: TRIGEMINAL NEURALGIA
     Dosage: 100 MG, TID
     Route: 048
     Dates: start: 20060403
  2. YASMIN [Concomitant]
     Indication: CONTRACEPTION
     Dosage: UNK, QD
     Route: 048
     Dates: start: 20030101
  3. LIORESAL [Suspect]
     Indication: TRIGEMINAL NEURALGIA
     Dosage: 10 MG, TID
     Route: 048
     Dates: start: 20060410

REACTIONS (8)
  - BLOOD PRESSURE DECREASED [None]
  - CONFUSIONAL STATE [None]
  - DECREASED APPETITE [None]
  - MEMORY IMPAIRMENT [None]
  - MUSCULAR WEAKNESS [None]
  - OLIGOMENORRHOEA [None]
  - SOMNOLENCE [None]
  - TREMOR [None]
